FAERS Safety Report 8352823-4 (Version None)
Quarter: 2012Q2

REPORT INFORMATION
  Report Type: 
  Country: None (occurrence: None)
  Receive Date: 20120511
  Receipt Date: 20120504
  Transmission Date: 20120825
  Serious: Yes (Hospitalization, Disabling)
  Sender: FDA-Public Use
  Company Number: DE-UCBSA-048362

PATIENT
  Age: 64 Year
  Sex: Male
  Weight: 58 kg

DRUGS (2)
  1. KEPPRA [Suspect]
     Dates: start: 20110601, end: 20110801
  2. KEPPRA [Suspect]
     Indication: EPILEPSY
     Dosage: 250MG IN THE MORNING AND 250MG IN THE EVENING
     Route: 048
     Dates: start: 20110801

REACTIONS (6)
  - DYSPHAGIA [None]
  - SPEECH DISORDER [None]
  - BEDRIDDEN [None]
  - WEIGHT DECREASED [None]
  - GRAND MAL CONVULSION [None]
  - LOSS OF CONSCIOUSNESS [None]
